FAERS Safety Report 7205457-9 (Version None)
Quarter: 2010Q4

REPORT INFORMATION
  Report Type: 
  Country: None (occurrence: None)
  Receive Date: 20101231
  Receipt Date: 20101223
  Transmission Date: 20110411
  Serious: Yes (Hospitalization, Other)
  Sender: FDA-Public Use
  Company Number: PHHO2010CO19665

PATIENT
  Sex: Male
  Weight: 72 kg

DRUGS (10)
  1. BLINDED ALISKIREN [Suspect]
     Indication: CARDIAC FAILURE
     Dosage: CODE NOT BROKEN
     Route: 048
     Dates: end: 20101219
  2. BLINDED ENALAPRIL [Suspect]
     Indication: CARDIAC FAILURE
     Dosage: CODE NOT BROKEN
     Route: 048
     Dates: end: 20101219
  3. BLINDED NO TREATMENT RECEIVED [Suspect]
     Indication: CARDIAC FAILURE
     Dosage: CODE NOT BROKEN
     Route: 048
     Dates: end: 20101219
  4. COMPARATOR ENALAPRIL [Suspect]
     Indication: CARDIAC FAILURE
     Dosage: UNK
     Dates: start: 20101118
  5. ALISKIREN [Suspect]
     Indication: CARDIAC FAILURE
     Dosage: UNK
     Route: 048
  6. LANITOP [Concomitant]
     Indication: CARDIAC FAILURE CHRONIC
     Dosage: UNK
     Dates: start: 20060101, end: 20101220
  7. BISOPROLOL [Concomitant]
     Indication: CARDIAC FAILURE CHRONIC
     Dosage: UNK
     Dates: start: 20060101, end: 20101220
  8. LOVASTATIN [Concomitant]
     Indication: PROPHYLAXIS
     Dosage: UNK
     Dates: start: 20060101
  9. ASPIRIN [Concomitant]
     Indication: PROPHYLAXIS
     Dosage: UNK
  10. FUROSEMIDE [Concomitant]
     Indication: CARDIAC FAILURE CHRONIC
     Dosage: UNK
     Dates: start: 20100825, end: 20101220

REACTIONS (9)
  - ASTHENIA [None]
  - CARDIAC FAILURE [None]
  - ELECTROLYTE IMBALANCE [None]
  - HYPERKALAEMIA [None]
  - HYPERNATRAEMIA [None]
  - HYPOTENSION [None]
  - NAUSEA [None]
  - RENAL FAILURE ACUTE [None]
  - VOMITING [None]
